FAERS Safety Report 18295424 (Version 1)
Quarter: 2020Q3

REPORT INFORMATION
  Report Type: Spontaneous
  Country: DK (occurrence: DK)
  Receive Date: 20200922
  Receipt Date: 20200922
  Transmission Date: 20201103
  Serious: Yes (Death, Life-Threatening, Hospitalization, Other)
  Sender: FDA-Public Use
  Company Number: DK-BRISTOL-MYERS SQUIBB COMPANY-BMS-2020-075510

PATIENT
  Age: 91 Year
  Sex: Male

DRUGS (4)
  1. FURIX [Concomitant]
     Indication: DIURETIC THERAPY
     Dosage: UNK
     Route: 048
     Dates: start: 20200810
  2. LORATADIN HEXAL [Concomitant]
     Active Substance: LORATADINE
     Indication: SEASONAL ALLERGY
     Dosage: 10 MILLIGRAM, PER DAY
     Route: 048
     Dates: start: 20190805
  3. ELIQUIS [Suspect]
     Active Substance: APIXABAN
     Indication: CEREBROVASCULAR ACCIDENT PROPHYLAXIS
     Dosage: 5 MILLIGRAM, PER DAY
     Route: 048
     Dates: start: 20181001
  4. PAMOL [Concomitant]
     Active Substance: ACETAMINOPHEN
     Indication: PAIN
     Dosage: 1000 MG AS NEEDED, MAX 4 TIMES A DAY
     Route: 048
     Dates: start: 20170405

REACTIONS (3)
  - Epistaxis [Fatal]
  - Ear haemorrhage [Fatal]
  - Acute respiratory failure [Fatal]

NARRATIVE: CASE EVENT DATE: 20200823
